FAERS Safety Report 6967138 (Version 2)
Quarter: 2013Q1

REPORT INFORMATION
  Report Type: Spontaneous
  Country: ES (occurrence: ES)
  Receive Date: 20090413
  Receipt Date: 20130208
  Transmission Date: 20140127
  Serious: Yes (Life-Threatening)
  Sender: FDA-Public Use
  Company Number: ES-CELGENEUS-144-21880-09040667

PATIENT
  Age: 65 Year
  Sex: Male
  Weight: 72 kg

DRUGS (6)
  1. REVLIMID [Suspect]
     Indication: MYELOFIBROSIS
     Dosage: 10 MILLIGRAM
     Route: 048
     Dates: start: 200810, end: 201004
  2. REVLIMID [Suspect]
     Route: 048
     Dates: start: 201012
  3. HYDREA [Concomitant]
     Indication: PRODUCT USED FOR UNKNOWN INDICATION
     Dosage: 1000 MILLIGRAM
  4. EXJADE [Concomitant]
     Indication: SERUM FERRITIN INCREASED
     Dosage: 500 MILLIGRAM
     Route: 048
  5. COROPRES [Concomitant]
     Indication: CARDIAC FAILURE
     Route: 065
  6. CANDESARTAN [Concomitant]
     Indication: CARDIAC FAILURE
     Route: 065

REACTIONS (2)
  - Deep vein thrombosis [Recovered/Resolved]
  - Thrombocytopenia [Unknown]
